FAERS Safety Report 5521674-8 (Version None)
Quarter: 2007Q4

REPORT INFORMATION
  Report Type: 
  Country: None (occurrence: None)
  Receive Date: 20071120
  Receipt Date: 20071113
  Transmission Date: 20080405
  Serious: Yes (Hospitalization, Other)
  Sender: FDA-Public Use
  Company Number: US-BRISTOL-MYERS SQUIBB COMPANY-13967179

PATIENT
  Age: 70 Year
  Sex: Female

DRUGS (11)
  1. DASATINIB [Suspect]
     Indication: SARCOMA
     Route: 048
     Dates: start: 20071016, end: 20071031
  2. ALLOPURINOL [Concomitant]
     Dates: start: 20070101
  3. THYROID TAB [Concomitant]
     Dates: start: 20060101
  4. COMPAZINE [Concomitant]
     Dates: start: 20070101
  5. FOLIC ACID [Concomitant]
     Dates: start: 20060101
  6. GABAPENTIN [Concomitant]
     Dates: start: 20070101
  7. LOMOTIL [Concomitant]
     Dates: start: 20071029
  8. SERTRALINE [Concomitant]
     Dates: start: 20070101
  9. TOPROL-XL [Concomitant]
     Dates: start: 20070101, end: 20071031
  10. VICODIN [Concomitant]
     Dates: start: 20070101
  11. ZOFRAN [Concomitant]
     Dates: start: 20070101

REACTIONS (5)
  - BLOOD CREATININE ABNORMAL [None]
  - DEHYDRATION [None]
  - DIARRHOEA [None]
  - RENAL FAILURE ACUTE [None]
  - URINARY TRACT INFECTION [None]
